FAERS Safety Report 9066838 (Version 3)
Quarter: 2013Q1

REPORT INFORMATION
  Report Type: Spontaneous
  Country: ZA (occurrence: ZA)
  Receive Date: 20130214
  Receipt Date: 20130305
  Transmission Date: 20140127
  Serious: No
  Sender: FDA-Public Use
  Company Number: ZA-GLAXOSMITHKLINE-B0867266A

PATIENT
  Sex: Male

DRUGS (4)
  1. WELLBUTRIN [Suspect]
     Indication: DEPRESSION
     Dosage: 300MG PER DAY
     Route: 065
  2. NEXIAM [Concomitant]
     Route: 065
  3. PROVIGIL [Concomitant]
     Route: 065
  4. ASACOL [Concomitant]
     Indication: COLITIS
     Route: 065

REACTIONS (3)
  - Nephrolithiasis [Recovering/Resolving]
  - Eyelid oedema [Recovered/Resolved]
  - Alopecia [Recovered/Resolved]
